FAERS Safety Report 4541341-7 (Version None)
Quarter: 2004Q4

REPORT INFORMATION
  Report Type: 
  Country: None (occurrence: None)
  Receive Date: 20041229
  Receipt Date: 20030130
  Transmission Date: 20050328
  Serious: Yes (Hospitalization, Disabling, Other)
  Sender: FDA-Public Use
  Company Number: US-MERCK-0302USA00108

PATIENT
  Age: 69 Year
  Sex: Male
  Weight: 98 kg

DRUGS (6)
  1. VIOXX [Suspect]
     Indication: ARTHRALGIA
     Route: 048
  2. VIOXX [Suspect]
     Route: 048
     Dates: start: 20000126
  3. VIOXX [Suspect]
     Indication: BACK PAIN
     Route: 048
  4. VIOXX [Suspect]
     Route: 048
     Dates: start: 20000126
  5. IBUPROFEN [Concomitant]
     Indication: ARTHRALGIA
     Route: 065
     Dates: start: 19970101, end: 19980101
  6. INSULIN [Concomitant]
     Route: 065

REACTIONS (38)
  - ACUTE MYOCARDIAL INFARCTION [None]
  - ADVERSE EVENT [None]
  - ATHEROSCLEROSIS [None]
  - BLOOD PRESSURE FLUCTUATION [None]
  - BURSITIS [None]
  - CARDIAC FAILURE CONGESTIVE [None]
  - CHRONIC OBSTRUCTIVE AIRWAYS DISEASE [None]
  - COLONIC POLYP [None]
  - DEPRESSION [None]
  - DIVERTICULUM [None]
  - DIZZINESS [None]
  - DRUG INTOLERANCE [None]
  - EMOTIONAL DISTRESS [None]
  - GASTROINTESTINAL HAEMORRHAGE [None]
  - GLAUCOMA [None]
  - HAEMORRHOIDS [None]
  - HYPERGLYCAEMIA [None]
  - HYPOACUSIS [None]
  - HYPOGLYCAEMIA [None]
  - INSOMNIA [None]
  - INTERVERTEBRAL DISC PROTRUSION [None]
  - INTERVERTEBRAL DISC SPACE NARROWING [None]
  - ISCHAEMIC CARDIOMYOPATHY [None]
  - KIDNEY INFECTION [None]
  - LACUNAR INFARCTION [None]
  - LOBAR PNEUMONIA [None]
  - NASAL CONGESTION [None]
  - PROSTATIC DISORDER [None]
  - PROSTATIC SPECIFIC ANTIGEN INCREASED [None]
  - PROTEINURIA [None]
  - PULMONARY OEDEMA [None]
  - RENAL FAILURE CHRONIC [None]
  - RHINITIS ALLERGIC [None]
  - THROMBOSIS [None]
  - VENTRICULAR ARRHYTHMIA [None]
  - VERTIGO [None]
  - VIRAL INFECTION [None]
  - VISUAL ACUITY REDUCED [None]
